FAERS Safety Report 5232746-X (Version None)
Quarter: 2007Q1

REPORT INFORMATION
  Report Type: 
  Country: None (occurrence: None)
  Receive Date: 20070207
  Receipt Date: 20070131
  Transmission Date: 20070707
  Serious: Yes (Death)
  Sender: FDA-Public Use
  Company Number: 2006UW26410

PATIENT
  Age: 21 Year
  Sex: Male
  Weight: 88.2 kg

DRUGS (4)
  1. SEROQUEL [Suspect]
     Indication: AGGRESSION
     Dosage: 300 - 600 MG
     Route: 048
     Dates: start: 20020419, end: 20061111
  2. SEROQUEL [Suspect]
     Indication: PSYCHOTIC DISORDER
     Dosage: 300 - 600 MG
     Route: 048
     Dates: start: 20020419, end: 20061111
  3. TRILEPTAL [Concomitant]
     Route: 048
  4. VAGUS NERVE STIMULATOR [Concomitant]
     Indication: CONVULSION

REACTIONS (1)
  - CONVULSION [None]
